FAERS Safety Report 6428200-X (Version None)
Quarter: 2009Q4

REPORT INFORMATION
  Report Type: 
  Country: None (occurrence: None)
  Receive Date: 20091030
  Receipt Date: 20091022
  Transmission Date: 20100525
  Serious: Yes (Life-Threatening)
  Sender: FDA-Public Use
  Company Number: GXKR2007GB04224

PATIENT
  Age: 55 Year
  Sex: Female

DRUGS (6)
  1. RIFAMPICIN [Suspect]
     Indication: PNEUMONIA LEGIONELLA
     Dosage: 600 MG, BID, ORAL
     Route: 048
     Dates: start: 20070410, end: 20070412
  2. ENOXAPARIN (ENOXPARIN, HEPARIN-FRACTION) [Suspect]
     Indication: THROMBOSIS PROPHYLAXIS
     Dosage: 40 MG, SUBCUTANEOUS
     Route: 058
     Dates: start: 20070407, end: 20070411
  3. AMOXICILLIN [Concomitant]
  4. CLARITHROMYCIN [Concomitant]
  5. OMEPRAZOLE [Concomitant]
  6. ENOXAPARIN SODIUM [Concomitant]

REACTIONS (6)
  - GASTROINTESTINAL HAEMORRHAGE [None]
  - GINGIVAL BLEEDING [None]
  - HAEMATURIA [None]
  - MELAENA [None]
  - PURPURA [None]
  - THROMBOCYTOPENIA [None]
